FAERS Safety Report 6852204-6 (Version None)
Quarter: 2010Q3

REPORT INFORMATION
  Report Type: 
  Country: None (occurrence: None)
  Receive Date: 20100717
  Receipt Date: 20080109
  Transmission Date: 20110219
  Serious: Yes (Other)
  Sender: FDA-Public Use
  Company Number: US-PFIZER INC-2007094424

PATIENT
  Sex: Female
  Weight: 70.3 kg

DRUGS (3)
  1. CHANTIX [Suspect]
     Indication: SMOKING CESSATION THERAPY
     Route: 048
     Dates: start: 20070920, end: 20070921
  2. MOMETASONE FUROATE [Concomitant]
     Indication: ASTHMA
     Route: 055
  3. ALLEGRA [Concomitant]
     Indication: HYPERSENSITIVITY
     Route: 048

REACTIONS (4)
  - ABDOMINAL PAIN UPPER [None]
  - CONSTIPATION [None]
  - HALLUCINATION, AUDITORY [None]
  - NAUSEA [None]
